FAERS Safety Report 11786234 (Version 3)
Quarter: 2015Q4

REPORT INFORMATION
  Report Type: Spontaneous
  Country: TW (occurrence: TW)
  Receive Date: 20151130
  Receipt Date: 20151222
  Transmission Date: 20160305
  Serious: Yes (Hospitalization)
  Sender: FDA-Public Use
  Company Number: TW-PFIZER INC-2015408840

PATIENT
  Age: 41 Year
  Sex: Male

DRUGS (7)
  1. DESFLURANE. [Concomitant]
     Active Substance: DESFLURANE
     Indication: GENERAL ANAESTHESIA
  2. MORPHINE [Suspect]
     Active Substance: MORPHINE
     Indication: ANALGESIC THERAPY
     Dosage: 3 MG, UNK
     Route: 040
  3. MORPHINE [Interacting]
     Active Substance: MORPHINE
     Dosage: 1 MG/ML,
  4. FENTANYL. [Concomitant]
     Active Substance: FENTANYL
     Indication: GENERAL ANAESTHESIA
     Dosage: 2.5 MG/KG
     Route: 042
  5. THIAMYLAL SODIUM [Concomitant]
     Active Substance: THIAMYLAL SODIUM
     Indication: GENERAL ANAESTHESIA
     Dosage: 5 MG/KG
     Route: 042
  6. CISATRACURIUM. [Concomitant]
     Active Substance: CISATRACURIUM
     Indication: GENERAL ANAESTHESIA
     Dosage: 1.5 MG/KG
     Route: 042
  7. KETOROLAC [Concomitant]
     Active Substance: KETOROLAC\KETOROLAC TROMETHAMINE
     Indication: ANALGESIC THERAPY
     Dosage: 1.2 MG/KG
     Route: 042

REACTIONS (1)
  - Drug-disease interaction [Recovered/Resolved]
